FAERS Safety Report 19088296 (Version 17)
Quarter: 2023Q2

REPORT INFORMATION
  Report Type: Report from Study
  Country: CN (occurrence: CN)
  Receive Date: 20210402
  Receipt Date: 20230601
  Transmission Date: 20230722
  Serious: Yes (Other)
  Sender: FDA-Public Use
  Company Number: CN-TAKEDA-2021TUS020772

PATIENT
  Age: 57 Year
  Sex: Female
  Weight: 55 kg

DRUGS (15)
  1. IXAZOMIB [Suspect]
     Active Substance: IXAZOMIB
     Indication: Plasma cell myeloma
     Dosage: 4 MILLIGRAM
     Route: 048
     Dates: start: 20210226
  2. METHYLCOBALAMIN [Concomitant]
     Active Substance: METHYLCOBALAMIN
     Indication: Neuropathy peripheral
     Dosage: 2 MILLIGRAM, QD
     Route: 041
     Dates: start: 20210225, end: 20210227
  3. METHYLCOBALAMIN [Concomitant]
     Active Substance: METHYLCOBALAMIN
     Dosage: 0.5 MILLIGRAM, TID
     Route: 048
     Dates: start: 20210226
  4. NEUROTROPIN [Concomitant]
     Active Substance: NEUROTROPIN
     Indication: Neuropathy peripheral
     Dosage: 6 MILLIGRAM, QD
     Route: 041
     Dates: start: 20210225, end: 20210227
  5. CREATINE [Concomitant]
     Active Substance: CREATINE
     Indication: Prophylaxis
     Dosage: 1 GRAM, QD
     Route: 041
     Dates: start: 20210226, end: 20210227
  6. MAGNESIUM ISOGLYCYRRHIZINATE [Concomitant]
     Active Substance: MAGNESIUM ISOGLYCYRRHIZINATE
     Indication: Prophylaxis
     Dosage: 200 MILLIGRAM, QD
     Route: 041
     Dates: start: 20210226, end: 20210227
  7. SODIUM BICARBONATE [Concomitant]
     Active Substance: SODIUM BICARBONATE
     Indication: Prophylaxis
     Dosage: 50 MILLILITER, QD
     Route: 041
     Dates: start: 20210226, end: 20210227
  8. FAMCICLOVIR [Concomitant]
     Active Substance: FAMCICLOVIR
     Indication: Antiviral treatment
     Dosage: 0.25 GRAM, TID
     Route: 048
     Dates: start: 20201218
  9. RIVAROXABAN [Concomitant]
     Active Substance: RIVAROXABAN
     Indication: Anticoagulant therapy
     Dosage: 10 MILLIGRAM, QD
     Route: 048
     Dates: start: 20201218
  10. FLUCONAZOLE [Concomitant]
     Active Substance: FLUCONAZOLE
     Indication: Prophylaxis
     Dosage: 150 MILLIGRAM, QD
     Route: 048
     Dates: start: 20210226
  11. CALCITRIOL [Concomitant]
     Active Substance: CALCITRIOL
     Indication: Mineral supplementation
     Dosage: 0.25 MICROGRAM, QD
     Route: 048
     Dates: start: 20201218
  12. PHOSPHOLIPID [Concomitant]
     Active Substance: PHOSPHOLIPID
     Indication: Prophylaxis
     Dosage: 456 MILLIGRAM, QD
     Route: 048
     Dates: start: 20210226
  13. RABEPRAZOLE SODIUM [Concomitant]
     Active Substance: RABEPRAZOLE SODIUM
     Indication: Prophylaxis
     Dosage: 10 MILLIGRAM, QD
     Route: 048
     Dates: start: 20210226
  14. CALTRATE WITH VITAMIN D [Concomitant]
     Active Substance: CALCIUM CARBONATE\CHOLECALCIFEROL
     Indication: Mineral supplementation
     Dosage: UNK, QD
     Route: 048
     Dates: start: 20201218
  15. POTASSIUM CHLORIDE [Concomitant]
     Active Substance: POTASSIUM CHLORIDE
     Indication: Mineral supplementation
     Dosage: 0.5 GRAM, QD
     Route: 048
     Dates: start: 20210121

REACTIONS (6)
  - Neuropathy peripheral [Not Recovered/Not Resolved]
  - Pneumonia [Recovered/Resolved]
  - Hepatitis B [Not Recovered/Not Resolved]
  - White blood cell count decreased [Recovered/Resolved]
  - Hepatic function abnormal [Recovered/Resolved]
  - Off label use [Recovered/Resolved]

NARRATIVE: CASE EVENT DATE: 20210226
